FAERS Safety Report 7822009-8 (Version None)
Quarter: 2011Q4

REPORT INFORMATION
  Report Type: 
  Country: None (occurrence: None)
  Receive Date: 20111018
  Receipt Date: 20111007
  Transmission Date: 20120403
  Serious: Yes (Other)
  Sender: FDA-Public Use
  Company Number: PHHY2011BR89132

PATIENT
  Sex: Female
  Weight: 63 kg

DRUGS (3)
  1. LEVOTHYROXINE SODIUM [Concomitant]
     Indication: HYPOTHYROIDISM
     Dosage: 1 DF, UNK
     Route: 048
  2. FORMOTEROL FUMARATE [Suspect]
     Indication: ASTHMA
     Dosage: 1 DF, UNK
  3. MODURETIC 5-50 [Concomitant]
     Dosage: 1 DF, UNK
     Route: 048

REACTIONS (2)
  - ASTHMA [None]
  - VITILIGO [None]
